FAERS Safety Report 6611606-3 (Version None)
Quarter: 2010Q1

REPORT INFORMATION
  Report Type: 
  Country: None (occurrence: None)
  Receive Date: 20100222
  Receipt Date: 20100205
  Transmission Date: 20100710
  Serious: Yes (Hospitalization)
  Sender: FDA-Public Use
  Company Number: A-US2010-33428

PATIENT
  Age: 43 Year
  Sex: Female

DRUGS (1)
  1. TRACLEER [Suspect]
     Indication: PULMONARY ARTERIAL HYPERTENSION
     Dosage: ORAL
     Route: 048
     Dates: start: 20090301

REACTIONS (4)
  - CONDITION AGGRAVATED [None]
  - OBSTRUCTIVE AIRWAYS DISORDER [None]
  - OFF LABEL USE [None]
  - PLEURAL EFFUSION [None]
